FAERS Safety Report 17859196 (Version 1)
Quarter: 2020Q2

REPORT INFORMATION
  Report Type: Spontaneous
  Country: GB (occurrence: GB)
  Receive Date: 20200604
  Receipt Date: 20200604
  Transmission Date: 20200714
  Serious: Yes (Other)
  Sender: FDA-Public Use
  Company Number: GB-TEVA-2020-GB-1244038

PATIENT
  Age: 71 Year
  Sex: Female
  Weight: 58.96 kg

DRUGS (12)
  1. RELVAR ELLIPTA [Concomitant]
     Active Substance: FLUTICASONE FUROATE\VILANTEROL TRIFENATATE
  2. BRALTUS [Concomitant]
     Active Substance: TIOTROPIUM BROMIDE
  3. BUTRANS [Concomitant]
     Active Substance: BUPRENORPHINE
     Dosage: 10
  4. PARACETAMOL [Concomitant]
     Active Substance: ACETAMINOPHEN
  5. ALENDRONIC ACID [Suspect]
     Active Substance: ALENDRONIC ACID
     Indication: OSTEOPOROSIS
     Dosage: 70 MG
     Route: 048
     Dates: start: 20200314, end: 20200514
  6. CITALOPRAM [Concomitant]
     Active Substance: CITALOPRAM HYDROBROMIDE
     Dosage: 30 MG
  7. PREGABALIN. [Concomitant]
     Active Substance: PREGABALIN
  8. EVACAL D3 CHEWABLE [Concomitant]
  9. LEVOTHYROXINE. [Concomitant]
     Active Substance: LEVOTHYROXINE
  10. VENTOLIN [Concomitant]
     Active Substance: ALBUTEROL SULFATE
     Route: 055
  11. VAGIFEM [Concomitant]
     Active Substance: ESTRADIOL
  12. OMEPRAZOLE. [Concomitant]
     Active Substance: OMEPRAZOLE

REACTIONS (5)
  - Abdominal pain upper [Recovering/Resolving]
  - Decreased appetite [Recovering/Resolving]
  - Oesophageal pain [Recovering/Resolving]
  - Malaise [Unknown]
  - Pain in extremity [Recovering/Resolving]

NARRATIVE: CASE EVENT DATE: 20200314
